FAERS Safety Report 8951731 (Version 2)
Quarter: 2012Q4

REPORT INFORMATION
  Report Type: 
  Country: PR (occurrence: PR)
  Receive Date: 20121204
  Receipt Date: 20121228
  Transmission Date: 20130627
  Serious: Yes (Hospitalization)
  Sender: FDA-Public Use
  Company Number: PR-ABBOTT-12P-131-1015065-00

PATIENT
  Sex: Male
  Weight: 49.94 kg

DRUGS (7)
  1. HUMIRA [Suspect]
     Indication: CROHN^S DISEASE
     Route: 058
     Dates: start: 201210
  2. FOSAMAX [Concomitant]
     Indication: OSTEONECROSIS
     Route: 048
     Dates: start: 201205
  3. MELOXICAM [Concomitant]
     Indication: OSTEONECROSIS
     Route: 048
     Dates: start: 201205
  4. CALTRATE [Concomitant]
     Indication: OSTEOPENIA
     Route: 048
     Dates: start: 2002
  5. FOLIC ACID [Concomitant]
     Indication: OSTEOPOROSIS
     Route: 048
     Dates: start: 2002
  6. IMURAN [Concomitant]
     Indication: CROHN^S DISEASE
     Route: 048
     Dates: start: 1999
  7. ASACOL [Concomitant]
     Indication: CROHN^S DISEASE
     Route: 048
     Dates: start: 20121130

REACTIONS (2)
  - Crohn^s disease [Not Recovered/Not Resolved]
  - Cholelithiasis [Not Recovered/Not Resolved]
